FAERS Safety Report 23478210 (Version 1)
Quarter: 2024Q1

REPORT INFORMATION
  Report Type: Report from Study
  Country: US (occurrence: US)
  Receive Date: 20240204
  Receipt Date: 20240204
  Transmission Date: 20240410
  Serious: No
  Sender: FDA-Public Use
  Company Number: US-EXELIXIS-CABO-23069466

PATIENT
  Sex: Male
  Weight: 64.689 kg

DRUGS (1)
  1. CABOMETYX [Suspect]
     Active Substance: CABOZANTINIB S-MALATE
     Indication: Renal cancer
     Dosage: 60 MG, QD
     Route: 048
     Dates: start: 20230920

REACTIONS (4)
  - Adverse drug reaction [Unknown]
  - COVID-19 [Unknown]
  - Hyperhidrosis [Unknown]
  - Diarrhoea [Unknown]
